FAERS Safety Report 9281092 (Version 5)
Quarter: 2013Q3

REPORT INFORMATION
  Report Type: Report from Study
  Country: US (occurrence: US)
  Receive Date: 20130509
  Receipt Date: 20130828
  Transmission Date: 20140515
  Serious: Yes (Other)
  Sender: FDA-Public Use
  Company Number: US-ABBOTT-13P-163-1086179-00

PATIENT
  Age: 29 Year
  Sex: Female
  Weight: 59.93 kg

DRUGS (4)
  1. HUMIRA [Suspect]
     Indication: CROHN^S DISEASE
     Route: 058
     Dates: start: 20121129, end: 20130405
  2. HUMIRA [Suspect]
     Route: 058
     Dates: start: 20130624
  3. 6MP [Suspect]
     Indication: PRODUCT USED FOR UNKNOWN INDICATION
  4. MERCAPTOPURINE [Concomitant]

REACTIONS (2)
  - Abdominal adhesions [Recovering/Resolving]
  - Gastrointestinal stromal tumour [Recovered/Resolved]
